FAERS Safety Report 19589155 (Version 1)
Quarter: 2021Q3

REPORT INFORMATION
  Report Type: Spontaneous
  Country: US (occurrence: US)
  Receive Date: 20210721
  Receipt Date: 20210721
  Transmission Date: 20211014
  Serious: Yes (Other)
  Sender: FDA-Public Use
  Company Number: US-PFIZER INC-2021854500

PATIENT
  Age: 60 Year
  Sex: Male
  Weight: 88 kg

DRUGS (6)
  1. DILANTIN [Suspect]
     Active Substance: PHENYTOIN
     Indication: SEIZURE
     Dosage: UNK
     Dates: start: 1965, end: 1967
  2. KEPPRA [Concomitant]
     Active Substance: LEVETIRACETAM
     Dosage: 1,000 IN THE MORNING AND 1,000 AT NIGHT
  3. DILANTIN [Suspect]
     Active Substance: PHENYTOIN
     Dosage: 300 MG, DAILY (100 MG IN THE MORNING AND 200 MG AT NIGHT)
  4. LAMICTAL [Concomitant]
     Active Substance: LAMOTRIGINE
     Dosage: 300 IN THE MORNING AND 300 AT NIGHT
  5. DILANTIN [Suspect]
     Active Substance: PHENYTOIN
     Indication: EPILEPSY
     Dosage: UNK
     Dates: start: 1979
  6. ZONEGRAN [Concomitant]
     Active Substance: ZONISAMIDE
     Dosage: 600 MG, DAILY (300MG IN THE MORNING AND 300MG IN THE EVENING)

REACTIONS (3)
  - Loss of consciousness [Unknown]
  - Therapeutic product effect decreased [Unknown]
  - Generalised tonic-clonic seizure [Unknown]
